FAERS Safety Report 6528782-3 (Version None)
Quarter: 2010Q1

REPORT INFORMATION
  Report Type: 
  Country: None (occurrence: None)
  Receive Date: 20100106
  Receipt Date: 20091228
  Transmission Date: 20100710
  Serious: Yes (Death, Other)
  Sender: FDA-Public Use
  Company Number: JP-AMGEN-US383191

PATIENT
  Age: 66 Year
  Sex: Female

DRUGS (2)
  1. ENBREL [Suspect]
     Indication: RHEUMATOID ARTHRITIS
     Dosage: NOT PROVIDED
     Route: 058
     Dates: start: 20090331, end: 20090831
  2. RHEUMATREX [Concomitant]
     Dosage: NOT PROVIDED
     Route: 048

REACTIONS (3)
  - ABASIA [None]
  - FALL [None]
  - STARVATION [None]
